FAERS Safety Report 10248546 (Version 1)
Quarter: 2014Q2

REPORT INFORMATION
  Report Type: Spontaneous
  Country: US (occurrence: None)
  Receive Date: 20140617
  Receipt Date: 20140617
  Transmission Date: 20141212
  Serious: Yes (Life-Threatening, Hospitalization)
  Sender: FDA-Public Use
  Company Number: None

PATIENT
  Age: 44 Year
  Sex: Female
  Weight: 85.4 kg

DRUGS (7)
  1. ORTHO NOVUM 1/35 [Suspect]
  2. ACYCLOVIR AS NEEDED [Concomitant]
  3. SEROQUEL 100MG QHS [Concomitant]
  4. DEPAKOTE ER 1000MG BID [Concomitant]
  5. LYRICA 600MG QHS [Concomitant]
  6. OXYCODONE/APAP 5/325MG 1-2 TABS Q4PRN [Concomitant]
  7. LEVOTHYROXINE 50MCG DAILY [Concomitant]

REACTIONS (3)
  - Deep vein thrombosis [None]
  - Chest pain [None]
  - Pulmonary embolism [None]
